FAERS Safety Report 15044723 (Version 2)
Quarter: 2018Q2

REPORT INFORMATION
  Report Type: Spontaneous
  Country: US (occurrence: US)
  Receive Date: 20180621
  Receipt Date: 20180625
  Transmission Date: 20180711
  Serious: No
  Sender: FDA-Public Use
  Company Number: US-PFIZER INC-2018250595

PATIENT
  Age: 70 Year
  Sex: Female
  Weight: 61 kg

DRUGS (3)
  1. TOVIAZ [Suspect]
     Active Substance: FESOTERODINE FUMARATE
     Indication: URINARY INCONTINENCE
     Dosage: 4 MG, 1X/DAY (IN THE EVENING)
  2. TOVIAZ [Suspect]
     Active Substance: FESOTERODINE FUMARATE
     Dosage: 8 MG, 1X/DAY (IN THE EVENING)
  3. TOVIAZ [Suspect]
     Active Substance: FESOTERODINE FUMARATE
     Dosage: UNK

REACTIONS (3)
  - Urinary tract infection [Unknown]
  - Urine abnormality [Unknown]
  - Drug effect incomplete [Unknown]
